FAERS Safety Report 18834213 (Version 2)
Quarter: 2021Q1

REPORT INFORMATION
  Report Type: Spontaneous
  Country: IN (occurrence: IN)
  Receive Date: 20210203
  Receipt Date: 20210203
  Transmission Date: 20210419
  Serious: Yes (Death, Other)
  Sender: FDA-Public Use
  Company Number: IN-SUN PHARMACEUTICAL INDUSTRIES LTD-2021R1-278498

PATIENT
  Age: 45 Year
  Sex: Male

DRUGS (3)
  1. TEMOZOLOMIDE. [Suspect]
     Active Substance: TEMOZOLOMIDE
     Indication: GLIOBLASTOMA
     Dosage: 100 MILLIGRAM, QD
     Route: 065
  2. NIMOTUMAB [Suspect]
     Active Substance: NIMOTUZUMAB
     Indication: GLIOBLASTOMA
     Dosage: 200 MG, EVERY 15 DAYS
  3. TEMOZOLOMIDE. [Suspect]
     Active Substance: TEMOZOLOMIDE
     Dosage: 250 MILLIGRAM, QD
     Route: 065

REACTIONS (1)
  - Metastasis [Fatal]
